FAERS Safety Report 11123429 (Version 1)
Quarter: 2015Q2

REPORT INFORMATION
  Report Type: Spontaneous
  Country: US (occurrence: US)
  Receive Date: 20150519
  Receipt Date: 20150519
  Transmission Date: 20150821
  Serious: Yes (Hospitalization, Disabling, Other)
  Sender: FDA-Public Use
  Company Number: US-009507513-1204USA00556

PATIENT
  Sex: Female

DRUGS (5)
  1. BONIVA [Suspect]
     Active Substance: IBANDRONATE SODIUM
     Indication: OSTEOPOROSIS
     Dates: start: 2004, end: 2008
  2. MK-0000 (111) [Suspect]
     Active Substance: INVESTIGATIONAL PRODUCT
  3. ACTONEL [Suspect]
     Active Substance: RISEDRONATE SODIUM
     Indication: OSTEOPOROSIS
     Dosage: 30 MG, UNK
     Route: 048
     Dates: start: 200111, end: 200211
  4. CLIMARA [Concomitant]
     Active Substance: ESTRADIOL
     Indication: MENOPAUSAL SYMPTOMS
     Dosage: UNK
     Dates: start: 2000
  5. BONIVA [Suspect]
     Active Substance: IBANDRONATE SODIUM
     Dosage: 150 MG, UNK
     Route: 048
     Dates: start: 200801, end: 200811

REACTIONS (10)
  - Femur fracture [Unknown]
  - Device failure [Unknown]
  - Low turnover osteopathy [Not Recovered/Not Resolved]
  - Bone disorder [Unknown]
  - Arthropathy [Unknown]
  - Osteoporosis [Not Recovered/Not Resolved]
  - Back disorder [Unknown]
  - Fall [Unknown]
  - Hypertension [Unknown]
  - Arthropathy [Unknown]

NARRATIVE: CASE EVENT DATE: 200708
